FAERS Safety Report 10575093 (Version 2)
Quarter: 2015Q1

REPORT INFORMATION
  Report Type: Spontaneous
  Country: US (occurrence: US)
  Receive Date: 20141111
  Receipt Date: 20150203
  Transmission Date: 20150720
  Serious: No
  Sender: FDA-Public Use
  Company Number: US-LEO PHARMA-230555

PATIENT
  Sex: Male

DRUGS (2)
  1. PICATO [Suspect]
     Active Substance: INGENOL MEBUTATE
     Indication: SQUAMOUS CELL CARCINOMA
     Dates: start: 20141029, end: 20141031
  2. PREDNISONE. [Concomitant]
     Active Substance: PREDNISONE
     Indication: WHITE BLOOD CELL COUNT INCREASED
     Route: 048

REACTIONS (6)
  - Inappropriate schedule of drug administration [Unknown]
  - Application site haemorrhage [Recovered/Resolved]
  - Application site discomfort [Recovered/Resolved]
  - Application site scab [Recovered/Resolved]
  - Product use issue [Unknown]
  - Application site burn [Recovered/Resolved]

NARRATIVE: CASE EVENT DATE: 20141029
